FAERS Safety Report 5793878-0 (Version None)
Quarter: 2008Q2

REPORT INFORMATION
  Report Type: 
  Country: None (occurrence: None)
  Receive Date: 20080627
  Receipt Date: 20080611
  Transmission Date: 20081010
  Serious: No
  Sender: FDA-Public Use
  Company Number: US-BOEHRINGER INGELHEIM GMBH, GERMANY-2008-BP-07401BP

PATIENT
  Sex: Female

DRUGS (5)
  1. FLOMAX [Suspect]
     Indication: NEPHROLITHIASIS
     Route: 048
     Dates: start: 20080501, end: 20080508
  2. AMBIEN [Concomitant]
  3. VICODIN [Concomitant]
  4. PREVACID [Concomitant]
  5. LIDODERM [Concomitant]

REACTIONS (8)
  - BLOOD PRESSURE INCREASED [None]
  - BURNING SENSATION [None]
  - DYSPEPSIA [None]
  - HEADACHE [None]
  - HEART RATE INCREASED [None]
  - INCREASED APPETITE [None]
  - SENSITIVITY OF TEETH [None]
  - WEIGHT INCREASED [None]
